FAERS Safety Report 22265237 (Version 2)
Quarter: 2023Q2

REPORT INFORMATION
  Report Type: Report from Study
  Country: US (occurrence: US)
  Receive Date: 20230428
  Receipt Date: 20230516
  Transmission Date: 20230722
  Serious: Yes (Hospitalization)
  Sender: FDA-Public Use
  Company Number: US-ABBVIE-4745610

PATIENT
  Age: 56 Year
  Sex: Male

DRUGS (2)
  1. DUOPA [Suspect]
     Active Substance: CARBIDOPA\LEVODOPA
     Indication: Parkinson^s disease
     Dosage: 4.63-20MG?FREQUENCY: 16 HOURS EACH DAY?MD: 11ML MAX OF 15ML, CD5.2ML MAX OF 8ML, ED: 0.8ML TO 1.5ML.
     Route: 050
     Dates: start: 202108
  2. DUOPA [Suspect]
     Active Substance: CARBIDOPA\LEVODOPA

REACTIONS (5)
  - Pneumonia aspiration [Recovering/Resolving]
  - Device issue [Unknown]
  - Nutritional condition abnormal [Not Recovered/Not Resolved]
  - Device occlusion [Not Recovered/Not Resolved]
  - Dysphagia [Unknown]

NARRATIVE: CASE EVENT DATE: 20230401
